FAERS Safety Report 16828710 (Version 1)
Quarter: 2019Q3

REPORT INFORMATION
  Report Type: Spontaneous
  Country: FR (occurrence: FR)
  Receive Date: 20190919
  Receipt Date: 20190919
  Transmission Date: 20191005
  Serious: Yes (Congenital Anomaly, Other)
  Sender: FDA-Public Use
  Company Number: FR-MYLANLABS-2019M1086888

PATIENT
  Age: 17 Year
  Sex: Male

DRUGS (2)
  1. CARBAMAZEPINE. [Suspect]
     Active Substance: CARBAMAZEPINE
     Indication: EPILEPSY
     Dosage: 800 MG, QD
     Route: 064
  2. DEPAKINE CHRONO [Suspect]
     Active Substance: VALPROATE SODIUM
     Indication: EPILEPSY
     Dosage: 2000 MG, QD
     Route: 064

REACTIONS (10)
  - Congenital hand malformation [Unknown]
  - Gastrooesophageal reflux disease [Unknown]
  - Dysmorphism [Unknown]
  - Laryngeal disorder [Unknown]
  - Hypotonia [Unknown]
  - Learning disorder [Unknown]
  - Foetal exposure during pregnancy [Recovered/Resolved]
  - Psychomotor skills impaired [Unknown]
  - Cognitive disorder [Unknown]
  - Language disorder [Unknown]
